FAERS Safety Report 25526738 (Version 2)
Quarter: 2025Q3

REPORT INFORMATION
  Report Type: Spontaneous
  Country: US (occurrence: US)
  Receive Date: 20250707
  Receipt Date: 20250718
  Transmission Date: 20251021
  Serious: Yes (Hospitalization)
  Sender: MERCK SHARP & DOHME LLC
  Company Number: US-009507513-2300902

PATIENT
  Age: 48 Year
  Sex: Female
  Weight: 93 kg

DRUGS (12)
  1. KEYTRUDA [Suspect]
     Active Substance: PEMBROLIZUMAB
     Indication: Invasive ductal breast carcinoma
     Route: 042
     Dates: start: 20250623, end: 20250623
  2. TAXOL [Suspect]
     Active Substance: PACLITAXEL
     Indication: Invasive ductal breast carcinoma
     Route: 065
     Dates: start: 20250623, end: 20250623
  3. CARBOPLATIN [Suspect]
     Active Substance: CARBOPLATIN
     Indication: Invasive ductal breast carcinoma
     Route: 065
     Dates: start: 20250623
  4. Prinivil; Zestril [Concomitant]
     Dosage: STRENGTH: 10 MG; 1 (ONE) TABLET BY MOUTH ONCE DAILY
     Route: 048
  5. VOLTAREN [Concomitant]
     Active Substance: DICLOFENAC SODIUM
     Dosage: 1% GEL; 2 (TWO) G TO AFFECTED AREA 4 TIMES DAILY
     Route: 065
  6. EMLA [Concomitant]
     Active Substance: LIDOCAINE\PRILOCAINE
     Route: 061
  7. Prinivil; Zestril [Concomitant]
     Dosage: STRENGTH: 10 MG; 1 (ONE) TABLET BY MOUTH ONCE DAILY
     Route: 048
  8. GLUCOPHAGE XR [Concomitant]
     Active Substance: METFORMIN HYDROCHLORIDE
     Dosage: STRENGTH: 500 MG; 1 (ONE) TABLET BY MOUTH DAILY WITH DINNER
     Route: 048
  9. VITAMINS [Concomitant]
     Active Substance: VITAMINS
     Dosage: 1 (ONE) TABLET BY MOUTH DAILY WITH FOOD
     Route: 048
  10. ZOFRAN [Concomitant]
     Active Substance: ONDANSETRON HYDROCHLORIDE
     Indication: Nausea
     Dosage: 1 (ONE) TABLET BY MOUTH EVERY 8 HOURS AS NEEDED; STRENGTH: 8 MG
     Route: 048
  11. COMPAZINE [Concomitant]
     Active Substance: PROCHLORPERAZINE MALEATE
     Indication: Nausea
     Dosage: STRENGTH: 10 MG; (ONE) TABLET BY MOUTH EVERY 6 HOURS AS NEEDED
     Route: 048
  12. ASCORBIC ACID [Concomitant]
     Active Substance: ASCORBIC ACID
     Dosage: STRENGTH: 1000MG; 1 (ONE) TABLET BY MOUTH ONCE DAILY
     Route: 048

REACTIONS (4)
  - Cardiac arrest [Recovered/Resolved]
  - Anaphylactic reaction [Recovered/Resolved]
  - Acute respiratory failure [Recovered/Resolved]
  - Pulmonary embolism [Unknown]

NARRATIVE: CASE EVENT DATE: 20250623
